FAERS Safety Report 9424679 (Version 2)
Quarter: 2013Q3

REPORT INFORMATION
  Report Type: Spontaneous
  Country: US (occurrence: US)
  Receive Date: 20130729
  Receipt Date: 20130823
  Transmission Date: 20140515
  Serious: Yes (Other)
  Sender: FDA-Public Use
  Company Number: US-GENZYME-FABR-1003454

PATIENT
  Sex: Female
  Weight: 80 kg

DRUGS (3)
  1. FABRAZYME [Suspect]
     Indication: FABRY^S DISEASE
     Dosage: 1 MG/KG (80 MG), Q2W
     Route: 042
     Dates: start: 20111208
  2. FABRAZYME [Suspect]
     Dosage: 0.5 MG/KG (40 MG), 1X/W
     Route: 042
  3. GABAPENTIN [Concomitant]
     Indication: PAIN
     Dosage: 2700 MG, QD
     Route: 065

REACTIONS (7)
  - Salivary gland calculus [Recovered/Resolved]
  - Infection [Recovered/Resolved]
  - Infusion related reaction [Not Recovered/Not Resolved]
  - Cardiac discomfort [Not Recovered/Not Resolved]
  - Sciatica [Not Recovered/Not Resolved]
  - Polyp [Not Recovered/Not Resolved]
  - Nausea [Not Recovered/Not Resolved]
